FAERS Safety Report 4452185-9 (Version None)
Quarter: 2004Q3

REPORT INFORMATION
  Report Type: 
  Country: None (occurrence: None)
  Receive Date: 20040917
  Receipt Date: 20040910
  Transmission Date: 20050211
  Serious: Yes (Hospitalization)
  Sender: FDA-Public Use
  Company Number: PHRM2004FR02773

PATIENT
  Age: 69 Year
  Sex: Female

DRUGS (2)
  1. LAMISIL [Suspect]
     Indication: NAIL TINEA
     Dosage: 250 MG, QD
     Route: 048
  2. SOTALOL HCL [Concomitant]

REACTIONS (5)
  - AGEUSIA [None]
  - ASTHENIA [None]
  - DYSPNOEA [None]
  - PRURITUS [None]
  - URTICARIA [None]
